FAERS Safety Report 20307361 (Version 1)
Quarter: 2022Q1

REPORT INFORMATION
  Report Type: Report from Study
  Country: NL (occurrence: NL)
  Receive Date: 20220107
  Receipt Date: 20220107
  Transmission Date: 20220423
  Serious: Yes (Hospitalization)
  Sender: FDA-Public Use
  Company Number: NL-AstraZeneca-2022A002380

PATIENT
  Age: 6 Month
  Sex: Female
  Weight: 6.2 kg

DRUGS (1)
  1. SYNAGIS [Suspect]
     Active Substance: PALIVIZUMAB
     Indication: Heart disease congenital
     Route: 030
     Dates: start: 20210908

REACTIONS (2)
  - Neonatal hypoxia [Recovered/Resolved]
  - Infantile spitting up [Not Recovered/Not Resolved]

NARRATIVE: CASE EVENT DATE: 20211201
